FAERS Safety Report 8766831 (Version 5)
Quarter: 2014Q2

REPORT INFORMATION
  Report Type: Report from Study
  Country: JP (occurrence: JP)
  Receive Date: 20120904
  Receipt Date: 20140613
  Transmission Date: 20141212
  Serious: Yes (Hospitalization, Other)
  Sender: FDA-Public Use
  Company Number: JP-VERTEX PHARMACEUTICAL INC.-AE-2012-003278

PATIENT
  Age: 59 Year
  Sex: Female

DRUGS (24)
  1. VX-950 (TELAPREVIR) [Suspect]
     Indication: CHRONIC HEPATITIS C
     Dosage: 2250 MG, QD
     Route: 048
     Dates: start: 20120221, end: 20120225
  2. VX-950 (TELAPREVIR) [Suspect]
     Dosage: 750 MG, QD
     Route: 048
     Dates: start: 20120302, end: 20120307
  3. VX-950 (TELAPREVIR) [Suspect]
     Dosage: 1500 MG, QD
     Route: 048
     Dates: start: 20120308, end: 20120412
  4. VX-950 (TELAPREVIR) [Suspect]
     Dosage: 250 MG, QD
     Route: 048
     Dates: start: 20120514, end: 20120628
  5. PEGINTRON [Suspect]
     Indication: CHRONIC HEPATITIS C
     Dosage: 1.24 ?G/KG, QW
     Route: 058
     Dates: start: 20120221, end: 20120221
  6. PEGINTRON [Suspect]
     Dosage: 0.77 ?G/KG, QW
     Route: 058
     Dates: start: 20120301, end: 20120301
  7. PEGINTRON [Suspect]
     Dosage: 0.62 ?G/KG, QW
     Route: 058
     Dates: start: 20120308, end: 20120322
  8. PEGINTRON [Suspect]
     Dosage: 0.77 ?G/KG, QW
     Route: 058
     Dates: start: 20120329, end: 20120419
  9. PEGINTRON [Suspect]
     Dosage: 0.47 ?G/KG, QW
     Route: 058
     Dates: start: 20120510, end: 20120510
  10. PEGINTRON [Suspect]
     Dosage: 0.79 ?G/KG, QW
     Route: 058
     Dates: start: 20120517, end: 20120531
  11. PEGINTRON [Suspect]
     Dosage: 1.1 ?G/KG, QW
     Route: 058
     Dates: start: 20120607, end: 20120607
  12. PEGINTRON [Suspect]
     Dosage: 1.27 ?G/KG, QW
     Route: 058
     Dates: start: 20120614, end: 20120705
  13. PEGINTRON [Suspect]
     Dosage: 1.43 ?G/KG, QW
     Route: 058
     Dates: start: 20120712, end: 20120802
  14. REBETOL [Suspect]
     Indication: CHRONIC HEPATITIS C
     Dosage: 600 MG, QD
     Route: 048
     Dates: start: 20120221, end: 20120225
  15. REBETOL [Suspect]
     Dosage: 200 MG, QD
     Route: 048
     Dates: start: 20120228, end: 20120228
  16. REBETOL [Suspect]
     Dosage: 400 MG, QD
     Route: 048
     Dates: start: 20120229, end: 20120307
  17. REBETOL [Suspect]
     Dosage: 600 MG, QD
     Route: 048
     Dates: start: 20120308, end: 20120404
  18. REBETOL [Suspect]
     Dosage: 400 MG, QD
     Route: 048
     Dates: start: 20120405, end: 20120412
  19. REBETOL [Suspect]
     Dosage: 200 MG, QD
     Route: 048
     Dates: start: 20120514, end: 20120520
  20. REBETOL [Suspect]
     Dosage: 400 MG, QD
     Route: 048
     Dates: start: 20120521, end: 20120620
  21. REBETOL [Suspect]
     Dosage: 600 MG, QD
     Route: 048
     Dates: start: 20120621, end: 20120809
  22. PROMAC [Concomitant]
     Dosage: 150 MG, QD
     Route: 048
     Dates: start: 20060724
  23. REBAMIPIDE [Concomitant]
     Dosage: 300 MG, QD
     Route: 048
     Dates: start: 20111128
  24. ALLEGRA [Concomitant]
     Dosage: 120 MG, QD
     Route: 048
     Dates: end: 20120531

REACTIONS (6)
  - Delirium [Recovered/Resolved]
  - Somnolence [Recovered/Resolved]
  - Hypoalbuminaemia [Recovered/Resolved]
  - Anaemia [Recovered/Resolved]
  - Diarrhoea [Recovered/Resolved]
  - Thrombocytopenia [Recovering/Resolving]
